FAERS Safety Report 4733183-4 (Version None)
Quarter: 2005Q3

REPORT INFORMATION
  Report Type: 
  Country: None (occurrence: None)
  Receive Date: 20050803
  Receipt Date: 20040510
  Transmission Date: 20060218
  Serious: Yes (Hospitalization, Other)
  Sender: FDA-Public Use
  Company Number: PHEH2004US05124

PATIENT
  Age: 66 Year
  Sex: Male

DRUGS (3)
  1. GLUCOTROL [Concomitant]
  2. ATENOLOL [Concomitant]
  3. LAMISIL [Suspect]
     Indication: NAIL TINEA
     Dosage: UNK, BID
     Route: 048
     Dates: start: 20000322

REACTIONS (8)
  - ASTHENIA [None]
  - DIFFICULTY IN WALKING [None]
  - FALL [None]
  - PAIN [None]
  - PSORIASIS [None]
  - RASH [None]
  - SKIN BURNING SENSATION [None]
  - SKIN DISCOLOURATION [None]
